FAERS Safety Report 5227009-2 (Version None)
Quarter: 2007Q1

REPORT INFORMATION
  Report Type: 
  Country: None (occurrence: None)
  Receive Date: 20070202
  Receipt Date: 20070131
  Transmission Date: 20070707
  Serious: Yes (Disabling)
  Sender: FDA-Public Use
  Company Number: DE-BRISTOL-MYERS SQUIBB COMPANY-13664594

PATIENT
  Age: 67 Year
  Sex: Female

DRUGS (2)
  1. AMPHOTERICIN B [Suspect]
     Indication: ORAL CANDIDIASIS
  2. RADIATION THERAPY [Concomitant]
     Indication: LIP AND/OR ORAL CAVITY CANCER
     Dates: start: 20061010, end: 20061120

REACTIONS (1)
  - TOOTH DISCOLOURATION [None]
